FAERS Safety Report 5857061-2 (Version None)
Quarter: 2008Q3

REPORT INFORMATION
  Report Type: 
  Country: None (occurrence: None)
  Receive Date: 20080825
  Receipt Date: 20080808
  Transmission Date: 20090109
  Serious: No
  Sender: FDA-Public Use
  Company Number: US-BOEHRINGER INGELHEIM GMBH, GERMANY-2008-BP-12462BP

PATIENT
  Age: 62 Year
  Sex: Male

DRUGS (3)
  1. MIRAPEX [Suspect]
     Indication: PARKINSON'S DISEASE
     Dosage: 1 MG BID AND 1.5 MG QHS
     Route: 048
     Dates: start: 20060801
  2. SINEMET [Concomitant]
  3. AZILECT [Concomitant]

REACTIONS (3)
  - ALOPECIA [None]
  - INCREASED APPETITE [None]
  - WEIGHT INCREASED [None]
